FAERS Safety Report 7918398-6 (Version None)
Quarter: 2011Q4

REPORT INFORMATION
  Report Type: 
  Country: None (occurrence: None)
  Receive Date: 20111114
  Receipt Date: 20111107
  Transmission Date: 20120403
  Serious: Yes (Hospitalization)
  Sender: FDA-Public Use
  Company Number: AUR-APL-2011-05738

PATIENT
  Age: 84 Year
  Sex: Female

DRUGS (5)
  1. CITALOPRAM HYDROBROMIDE [Suspect]
     Indication: DEPRESSION
     Dosage: (1 IN 1 D) ORAL
     Route: 048
     Dates: end: 20110221
  2. PARECETAMOL (PARECETAMOL) [Concomitant]
  3. ASPIRIN [Suspect]
     Indication: MYOCARDIAL INFARCTION
     Dosage: 75MG  (75 MG, 1 IN 1 D) ORAL
     Route: 048
     Dates: end: 20110221
  4. GTN (GLYCERYL TRINITRATE) [Concomitant]
  5. SIMVASTATIN [Concomitant]

REACTIONS (4)
  - UPPER GASTROINTESTINAL HAEMORRHAGE [None]
  - HAEMOGLOBIN DECREASED [None]
  - FAECES DISCOLOURED [None]
  - ABDOMINAL PAIN [None]
